FAERS Safety Report 25640667 (Version 1)
Quarter: 2025Q3

REPORT INFORMATION
  Report Type: Report from Study
  Country: US (occurrence: US)
  Receive Date: 20250804
  Receipt Date: 20250804
  Transmission Date: 20251021
  Serious: Yes (Death, Hospitalization)
  Sender: PFIZER
  Company Number: US-PFIZER INC-202500144787

PATIENT
  Age: 86 Year
  Sex: Male

DRUGS (19)
  1. VYNDAMAX [Suspect]
     Active Substance: TAFAMIDIS
     Dosage: 61 MG (1 CAPSULE), 1X/DAY
     Route: 048
     Dates: start: 20250624
  2. VYNDAMAX [Suspect]
     Active Substance: TAFAMIDIS
     Dosage: 61 MG (1 CAPSULE), 1X/DAY
     Route: 048
     Dates: start: 202507
  3. ABIRATERONE [Concomitant]
     Active Substance: ABIRATERONE
  4. AMIODARONE [Concomitant]
     Active Substance: AMIODARONE
  5. AMIODARONE [Concomitant]
     Active Substance: AMIODARONE
  6. ATORVASTATIN [Concomitant]
     Active Substance: ATORVASTATIN
  7. VITAMIN B COMPLEX WITH C [Concomitant]
     Active Substance: ASCORBIC ACID\CALCIUM PANTOTHENATE\CYANOCOBALAMIN\NIACINAMIDE\PYRIDOXINE HYDROCHLORIDE\RIBOFLAVIN\TH
  8. CALCIUM [Concomitant]
     Active Substance: CALCIUM
  9. DILTIAZEM [Concomitant]
     Active Substance: DILTIAZEM
  10. ELIGARD [Concomitant]
     Active Substance: LEUPROLIDE ACETATE
  11. ELIQUIS [Concomitant]
     Active Substance: APIXABAN
  12. METOPROLOL SUCCINATE [Concomitant]
     Active Substance: METOPROLOL SUCCINATE
  13. METOPROLOL SUCCINATE [Concomitant]
     Active Substance: METOPROLOL SUCCINATE
  14. PREDNISONE [Concomitant]
     Active Substance: PREDNISONE
  15. DIETARY SUPPLEMENT\RESVERATROL [Concomitant]
     Active Substance: DIETARY SUPPLEMENT\RESVERATROL
  16. VITAMIN B12 [Concomitant]
     Active Substance: CYANOCOBALAMIN
  17. VITAMIN D3 [Concomitant]
     Active Substance: CHOLECALCIFEROL
  18. METOPROLOL [Concomitant]
     Active Substance: METOPROLOL
  19. ASPIRIN [Concomitant]
     Active Substance: ASPIRIN

REACTIONS (2)
  - Death [Fatal]
  - Coronary artery occlusion [Unknown]

NARRATIVE: CASE EVENT DATE: 20250715
